FAERS Safety Report 18948837 (Version 4)
Quarter: 2021Q2

REPORT INFORMATION
  Report Type: Spontaneous
  Country: TR (occurrence: TR)
  Receive Date: 20210227
  Receipt Date: 20210419
  Transmission Date: 20210717
  Serious: Yes (Life-Threatening, Hospitalization, Other)
  Sender: FDA-Public Use
  Company Number: TR-AMGEN-TURSP2021030974

PATIENT
  Age: 63 Year
  Sex: Male
  Weight: 70 kg

DRUGS (15)
  1. BLINCYTO [Suspect]
     Active Substance: BLINATUMOMAB
     Dosage: 133.75 MILLIGRAM, 4
     Route: 042
     Dates: start: 20210307
  2. EXJADE [Concomitant]
     Active Substance: DEFERASIROX
     Dosage: 500 MILLIGRAM
  3. KONAKION [Concomitant]
     Active Substance: PHYTONADIONE
  4. BLINCYTO [Suspect]
     Active Substance: BLINATUMOMAB
     Dosage: 133.75 MILLIGRAM, 4
     Route: 042
     Dates: start: 20210228
  5. BLINCYTO [Suspect]
     Active Substance: BLINATUMOMAB
     Dosage: 100 MILLIGRAM,3
     Route: 042
     Dates: start: 20210311
  6. PARTEMOL [Concomitant]
     Dosage: 1 GRAM
  7. POTASSIUM [Concomitant]
     Active Substance: POTASSIUM
     Dosage: 60 MILLIGRAM
  8. TAVANIC [Concomitant]
     Active Substance: LEVOFLOXACIN
     Dosage: 500 MILLIGRAM
  9. BLINCYTO [Suspect]
     Active Substance: BLINATUMOMAB
     Indication: ACUTE LYMPHOCYTIC LEUKAEMIA
     Dosage: 41.25 MILLIGRAM, 2
     Route: 042
     Dates: start: 20210219
  10. PERGE [Concomitant]
     Dosage: 75 MILLIGRAM
  11. BLINCYTO [Suspect]
     Active Substance: BLINATUMOMAB
     Dosage: 31.25 MILLIGRAM, 1
     Route: 042
     Dates: start: 20210224
  12. RIFCAP [Concomitant]
     Dosage: 300 MILLIGRAM
  13. BLINCYTO [Suspect]
     Active Substance: BLINATUMOMAB
     Dosage: 100 MILLIGRAM, 3
     Route: 042
     Dates: start: 20210304
  14. BLINCYTO [Suspect]
     Active Substance: BLINATUMOMAB
     Dosage: 133.75 MILLIGRAM, 4
     Route: 042
     Dates: start: 20210314
  15. LIORESAL [Concomitant]
     Active Substance: BACLOFEN
     Dosage: 10 MILLIGRAM

REACTIONS (3)
  - Tachycardia [Recovered/Resolved]
  - Pyrexia [Recovered/Resolved]
  - Hypotension [Recovered/Resolved]

NARRATIVE: CASE EVENT DATE: 20210222
